FAERS Safety Report 4809290-4 (Version None)
Quarter: 2005Q4

REPORT INFORMATION
  Report Type: 
  Country: None (occurrence: None)
  Receive Date: 20051021
  Receipt Date: 20051006
  Transmission Date: 20060501
  Serious: Yes (Other)
  Sender: FDA-Public Use
  Company Number: 200510624BNE

PATIENT
  Age: 48 Year
  Sex: Male

DRUGS (13)
  1. LEVITRA [Suspect]
     Indication: ERECTILE DYSFUNCTION
     Dates: start: 20050601, end: 20050701
  2. LEVITRA [Suspect]
     Indication: ERECTILE DYSFUNCTION
     Dates: start: 20050601, end: 20050701
  3. LEVITRA [Suspect]
     Indication: ERECTILE DYSFUNCTION
     Dates: start: 20050601, end: 20050701
  4. LEVITRA [Suspect]
     Indication: ERECTILE DYSFUNCTION
     Dates: start: 20050601, end: 20050701
  5. LEVITRA [Suspect]
     Indication: ERECTILE DYSFUNCTION
     Dates: start: 20050601, end: 20050701
  6. LEVITRA [Suspect]
     Indication: ERECTILE DYSFUNCTION
     Dates: start: 20050601, end: 20050701
  7. SYNACTHEN DEPOT [Concomitant]
  8. MELOXICAM [Concomitant]
  9. ACETAMINOPHEN [Concomitant]
  10. LATANOPROST [Concomitant]
  11. ACETAZOLAMIDE [Concomitant]
  12. RANITIDINE [Concomitant]
  13. AZOPT [Concomitant]

REACTIONS (3)
  - CONDITION AGGRAVATED [None]
  - JUVENILE ARTHRITIS [None]
  - MOBILITY DECREASED [None]
